FAERS Safety Report 4313986-0 (Version None)
Quarter: 2004Q1

REPORT INFORMATION
  Report Type: 
  Country: None (occurrence: None)
  Receive Date: 20040305
  Receipt Date: 20040219
  Transmission Date: 20041129
  Serious: Yes (Hospitalization, Other)
  Sender: FDA-Public Use
  Company Number: ZONI001334

PATIENT
  Age: 28 Year
  Sex: Male

DRUGS (2)
  1. ZONISAMIDE (ZONISAMIDE) [Suspect]
     Indication: CONVULSION
     Dosage: 600 MG DAILY
  2. CARBAMAZEPINE [Suspect]
     Indication: CONVULSION
     Dosage: 300 MG DAILY

REACTIONS (4)
  - AFFECTIVE DISORDER [None]
  - APHASIA [None]
  - CONVULSION [None]
  - MANIA [None]
